FAERS Safety Report 4269165-9 (Version None)
Quarter: 2004Q1

REPORT INFORMATION
  Report Type: 
  Country: None (occurrence: None)
  Receive Date: 20040108
  Receipt Date: 20031223
  Transmission Date: 20041129
  Serious: Yes (Life-Threatening)
  Sender: FDA-Public Use
  Company Number: 2004-01209

PATIENT
  Age: 68 Year
  Sex: Female
  Weight: 55 kg

DRUGS (6)
  1. DAUNOXOME [Suspect]
     Indication: ACUTE MYELOID LEUKAEMIA
     Dosage: 70 MG QD IV
     Route: 042
     Dates: start: 20031210, end: 20031213
  2. CITARABINA [Suspect]
     Indication: ACUTE MYELOID LEUKAEMIA
     Dosage: 163 MG QD IV
     Route: 042
     Dates: start: 20031210, end: 20031217
  3. GRANISETRON [Concomitant]
  4. AMLODIPINA [Concomitant]
  5. ACID-TRANEXAMICO [Concomitant]
  6. ALLOPURINOL [Concomitant]

REACTIONS (3)
  - HAEMORRHAGIC CEREBRAL INFARCTION [None]
  - INJURY [None]
  - REFRACTORINESS TO PLATELET TRANSFUSION [None]
